FAERS Safety Report 14496547 (Version 1)
Quarter: 2018Q1

REPORT INFORMATION
  Report Type: Spontaneous
  Country: US (occurrence: US)
  Receive Date: 20180207
  Receipt Date: 20180207
  Transmission Date: 20180509
  Serious: Yes (Hospitalization, Other)
  Sender: FDA-Public Use
  Company Number: US-ACCORD-063167

PATIENT
  Age: 22 Year
  Sex: Female

DRUGS (5)
  1. VALPROIC ACID. [Concomitant]
     Active Substance: VALPROIC ACID
     Indication: SCHIZOPHRENIA
     Dosage: ON DAY 62, THE VALPROATE DOSE WAS INCREASED TO 1,500 MG/DAY
  2. HALOPERIDOL. [Concomitant]
     Active Substance: HALOPERIDOL
     Indication: SCHIZOPHRENIA
  3. TRAZODONE [Concomitant]
     Active Substance: TRAZODONE HYDROCHLORIDE
  4. CLOZAPINE. [Suspect]
     Active Substance: CLOZAPINE
     Indication: SCHIZOPHRENIA
     Dosage: INCREASED UP TO 500 MG THEN REDUCED TO 450 MG, 400 MG AD 350 MG
  5. OLANZAPINE. [Concomitant]
     Active Substance: OLANZAPINE
     Indication: SCHIZOPHRENIA

REACTIONS (5)
  - Myoclonus [Recovered/Resolved]
  - Fall [Recovered/Resolved]
  - Neutropenia [Unknown]
  - Constipation [Unknown]
  - Salivary hypersecretion [Unknown]
